FAERS Safety Report 10657156 (Version 1)
Quarter: 2014Q4

REPORT INFORMATION
  Report Type: Spontaneous
  Country: FR (occurrence: None)
  Receive Date: 20141215
  Receipt Date: 20141215
  Transmission Date: 20150529
  Serious: Yes (Hospitalization)
  Sender: FDA-Public Use
  Company Number: FR2014GSK013528

PATIENT
  Age: 76 Year
  Sex: Female

DRUGS (3)
  1. CALCIPARINE [Suspect]
     Active Substance: HEPARIN CALCIUM
     Indication: ATRIAL FIBRILLATION
     Route: 058
     Dates: start: 20141002, end: 20141006
  2. PREVISCAN (FLUINDIONE) (FLUINDIONE) [Suspect]
     Active Substance: FLUINDIONE
     Indication: ATRIAL FIBRILLATION
     Route: 048
     Dates: start: 20141004, end: 20141006
  3. DEROXAT [Suspect]
     Active Substance: PAROXETINE HYDROCHLORIDE
     Indication: BIPOLAR DISORDER
     Route: 048
     Dates: start: 20141005

REACTIONS (7)
  - Haematoma [None]
  - Acute kidney injury [None]
  - Intentional overdose [None]
  - Atrial fibrillation [None]
  - Hypovolaemic shock [None]
  - Haemorrhagic stroke [None]
  - Drug interaction [None]

NARRATIVE: CASE EVENT DATE: 20141005
